FAERS Safety Report 17054051 (Version 1)
Quarter: 2019Q4

REPORT INFORMATION
  Report Type: Spontaneous
  Country: JP (occurrence: JP)
  Receive Date: 20191120
  Receipt Date: 20191120
  Transmission Date: 20200122
  Serious: Yes (Death)
  Sender: FDA-Public Use
  Company Number: JP-PFIZER INC-2019442057

PATIENT
  Sex: Male

DRUGS (2)
  1. INLYTA [Suspect]
     Active Substance: AXITINIB
     Indication: RENAL CELL CARCINOMA
     Dosage: UNK
  2. VALSARTAN. [Concomitant]
     Active Substance: VALSARTAN
     Dosage: UNK

REACTIONS (5)
  - Anaemia [Unknown]
  - Neoplasm progression [Unknown]
  - Haematuria [Unknown]
  - General physical health deterioration [Fatal]
  - Proteinuria [Unknown]

NARRATIVE: CASE EVENT DATE: 2019
